FAERS Safety Report 12947506 (Version 2)
Quarter: 2016Q4

REPORT INFORMATION
  Report Type: Report from Study
  Country: US (occurrence: US)
  Receive Date: 20161116
  Receipt Date: 20161116
  Transmission Date: 20170207
  Serious: Yes (Other)
  Sender: FDA-Public Use
  Company Number: US-BAYER-2016-198039

PATIENT
  Age: 51 Year
  Sex: Male

DRUGS (2)
  1. STIVARGA [Suspect]
     Active Substance: REGORAFENIB
     Indication: COLORECTAL CANCER
     Dosage: 160 MG, QD
     Route: 048
     Dates: start: 201610
  2. STIVARGA [Suspect]
     Active Substance: REGORAFENIB
     Indication: COLORECTAL CANCER
     Dosage: UNK, QD
     Route: 048
     Dates: start: 20161008, end: 201610

REACTIONS (23)
  - Decreased appetite [None]
  - Peripheral swelling [None]
  - Limb discomfort [None]
  - Fatigue [None]
  - Abdominal distension [None]
  - Pain [Not Recovered/Not Resolved]
  - Abdominal pain [None]
  - Asthenia [None]
  - Constipation [None]
  - Rash [None]
  - Weight decreased [None]
  - Bone pain [Not Recovered/Not Resolved]
  - Oedema peripheral [None]
  - Ocular icterus [None]
  - Blood pressure increased [None]
  - Haematuria [None]
  - Back pain [None]
  - Dysgeusia [None]
  - Burning sensation [None]
  - Erythema [None]
  - Confusional state [None]
  - Anxiety [None]
  - Skin discolouration [None]

NARRATIVE: CASE EVENT DATE: 2016
